FAERS Safety Report 19658423 (Version 6)
Quarter: 2022Q1

REPORT INFORMATION
  Report Type: Report from Study
  Country: US (occurrence: US)
  Receive Date: 20210805
  Receipt Date: 20220209
  Transmission Date: 20220424
  Serious: Yes (Life-Threatening, Other)
  Sender: FDA-Public Use
  Company Number: US-AUROBINDO-AUR-APL-2021-033853

PATIENT
  Age: 62 Year
  Sex: Female
  Weight: 68.2 kg

DRUGS (11)
  1. BELINOSTAT [Suspect]
     Active Substance: BELINOSTAT
     Indication: Acute myeloid leukaemia
     Dosage: 7702 MILLIGRAM
     Route: 065
     Dates: start: 20201026
  2. BELINOSTAT [Suspect]
     Active Substance: BELINOSTAT
     Dosage: 6880 MILLIGRAM
     Route: 065
     Dates: start: 20201116
  3. BELINOSTAT [Suspect]
     Active Substance: BELINOSTAT
     Dosage: 6880 MILLIGRAM
     Route: 065
     Dates: start: 20201207
  4. BELINOSTAT [Suspect]
     Active Substance: BELINOSTAT
     Dosage: 6880 MILLIGRAM
     Route: 065
     Dates: start: 20201228
  5. BELINOSTAT [Suspect]
     Active Substance: BELINOSTAT
     Dosage: 6608 MILLIGRAM
     Route: 065
     Dates: start: 20210120
  6. BELINOSTAT [Suspect]
     Active Substance: BELINOSTAT
     Dosage: 6920 MILLIGRAM
     Route: 065
     Dates: start: 20210208
  7. PEVONEDISTAT HYDROCHLORIDE [Suspect]
     Active Substance: PEVONEDISTAT HYDROCHLORIDE
     Indication: Product used for unknown indication
     Dosage: 125 MILLIGRAM
     Route: 065
  8. PEVONEDISTAT HYDROCHLORIDE [Suspect]
     Active Substance: PEVONEDISTAT HYDROCHLORIDE
     Dosage: 192 MILLIGRAM
     Route: 065
  9. PEVONEDISTAT HYDROCHLORIDE [Suspect]
     Active Substance: PEVONEDISTAT HYDROCHLORIDE
     Dosage: 192 MILLIGRAM
     Route: 065
  10. PEVONEDISTAT HYDROCHLORIDE [Suspect]
     Active Substance: PEVONEDISTAT HYDROCHLORIDE
     Dosage: 192 MILLIGRAM
     Route: 065
  11. PEVONEDISTAT HYDROCHLORIDE [Suspect]
     Active Substance: PEVONEDISTAT HYDROCHLORIDE
     Dosage: 192 MILLIGRAM
     Route: 065

REACTIONS (20)
  - Neutrophil count decreased [Unknown]
  - Platelet count decreased [Unknown]
  - White blood cell count decreased [Unknown]
  - Injection site reaction [Unknown]
  - Hypotension [Unknown]
  - Fatigue [Unknown]
  - Nausea [Unknown]
  - Anaemia [Unknown]
  - Hypoxia [Unknown]
  - Dizziness [Unknown]
  - Paraesthesia [Unknown]
  - Nail disorder [Unknown]
  - Palpitations [Unknown]
  - Hyperglycaemia [Unknown]
  - Pain in extremity [Unknown]
  - Constipation [Unknown]
  - Cough [Unknown]
  - Headache [Unknown]
  - Gastrooesophageal reflux disease [Unknown]
  - Pain [Unknown]

NARRATIVE: CASE EVENT DATE: 20201026
